FAERS Safety Report 9603092 (Version 1)
Quarter: 2013Q4

REPORT INFORMATION
  Report Type: Spontaneous
  Country: DK (occurrence: DK)
  Receive Date: 20131007
  Receipt Date: 20131007
  Transmission Date: 20140711
  Serious: Yes (Hospitalization)
  Sender: FDA-Public Use
  Company Number: DK-JNJFOC-20131000679

PATIENT
  Age: 24 Year
  Sex: Male

DRUGS (2)
  1. REMICADE [Suspect]
     Indication: CROHN^S DISEASE
     Route: 042
     Dates: start: 2004
  2. REMICADE [Suspect]
     Indication: CROHN^S DISEASE
     Route: 042
     Dates: start: 200602, end: 2011

REACTIONS (5)
  - Hodgkin^s disease nodular sclerosis stage III [Unknown]
  - C-reactive protein increased [Unknown]
  - Pyrexia [Unknown]
  - Back pain [Unknown]
  - Melanocytic naevus [Unknown]
